FAERS Safety Report 10506475 (Version 1)
Quarter: 2014Q4

REPORT INFORMATION
  Report Type: Spontaneous
  Country: US (occurrence: US)
  Receive Date: 20141009
  Receipt Date: 20141009
  Transmission Date: 20150528
  Serious: No
  Sender: FDA-Public Use
  Company Number: US-BIOGENIDEC-2014BI101455

PATIENT
  Age: 65 Year
  Sex: Female

DRUGS (24)
  1. METHOCARBAMOL. [Concomitant]
     Active Substance: METHOCARBAMOL
  2. NORVASC [Concomitant]
     Active Substance: AMLODIPINE BESYLATE
  3. CLONIDINE HCL [Concomitant]
     Active Substance: CLONIDINE HYDROCHLORIDE
  4. DIOVAN [Concomitant]
     Active Substance: VALSARTAN
  5. TECFIDERA [Suspect]
     Active Substance: DIMETHYL FUMARATE
     Indication: MULTIPLE SCLEROSIS
     Route: 048
     Dates: start: 20140530
  6. SINGULAIR [Concomitant]
     Active Substance: MONTELUKAST SODIUM
  7. ZOLPIDEM TARTRATE. [Concomitant]
     Active Substance: ZOLPIDEM TARTRATE
  8. AMBIEN [Concomitant]
     Active Substance: ZOLPIDEM TARTRATE
  9. KLOR-CON [Concomitant]
     Active Substance: POTASSIUM CHLORIDE
  10. MIRALAX [Concomitant]
     Active Substance: POLYETHYLENE GLYCOL 3350
  11. OXYCODONE HCL [Concomitant]
     Active Substance: OXYCODONE HYDROCHLORIDE
  12. SIMVASTATIN. [Concomitant]
     Active Substance: SIMVASTATIN
  13. OMEPRAZOLE. [Concomitant]
     Active Substance: OMEPRAZOLE
  14. TETANUS TOXOID FLUID [Concomitant]
  15. POLYETHYLENE GLYCOL 1450 [Concomitant]
  16. METHADONE HCL [Concomitant]
     Active Substance: METHADONE HYDROCHLORIDE
  17. MELOXICAM. [Concomitant]
     Active Substance: MELOXICAM
  18. NITRO QUICK [Concomitant]
  19. SOMA [Concomitant]
     Active Substance: CARISOPRODOL
  20. CRESTOR [Concomitant]
     Active Substance: ROSUVASTATIN CALCIUM
  21. BACLOFEN. [Concomitant]
     Active Substance: BACLOFEN
  22. ROBAXIN [Concomitant]
     Active Substance: METHOCARBAMOL
  23. PREMPRO [Concomitant]
     Active Substance: ESTROGENS, CONJUGATED\MEDROXYPROGESTERONE ACETATE
  24. CLONAZEPAM. [Concomitant]
     Active Substance: CLONAZEPAM

REACTIONS (1)
  - Dysphagia [Unknown]
